FAERS Safety Report 15160611 (Version 3)
Quarter: 2018Q4

REPORT INFORMATION
  Report Type: Spontaneous
  Country: US (occurrence: US)
  Receive Date: 20180718
  Receipt Date: 20181203
  Transmission Date: 20190204
  Serious: Yes (Other)
  Sender: FDA-Public Use
  Company Number: US-SA-2018SA187476

PATIENT

DRUGS (1)
  1. SELSUN BLUE [Suspect]
     Active Substance: SELENIUM SULFIDE

REACTIONS (1)
  - Suicidal ideation [Unknown]
